FAERS Safety Report 5273032-1 (Version None)
Quarter: 2007Q1

REPORT INFORMATION
  Report Type: 
  Country: None (occurrence: None)
  Receive Date: 20070322
  Receipt Date: 20070307
  Transmission Date: 20070707
  Serious: Yes (Death)
  Sender: FDA-Public Use
  Company Number: US-SHR-US-2007-008197

PATIENT
  Age: 67 Year
  Sex: Female
  Weight: 60.771 kg

DRUGS (9)
  1. BETASERON [Suspect]
     Indication: RELAPSING-REMITTING MULTIPLE SCLEROSIS
     Dosage: 8 MIU, EVERY 2D
     Route: 058
     Dates: start: 20061006, end: 20070219
  2. METFORMIN [Concomitant]
  3. LEXAPRO [Concomitant]
  4. LOTREL [Concomitant]
  5. FUROSEMIDE [Concomitant]
  6. LIPITOR [Concomitant]
  7. FOSAMAX [Concomitant]
  8. ASPIRIN [Concomitant]
  9. CENTRUM SILVER [Concomitant]

REACTIONS (1)
  - DEATH [None]
